FAERS Safety Report 18171298 (Version 8)
Quarter: 2022Q1

REPORT INFORMATION
  Report Type: Report from Study
  Country: CA (occurrence: CA)
  Receive Date: 20200819
  Receipt Date: 20220304
  Transmission Date: 20220423
  Serious: Yes (Hospitalization, Other)
  Sender: FDA-Public Use
  Company Number: NVSC2020CA144261

PATIENT
  Age: 76 Year
  Sex: Male

DRUGS (9)
  1. SANDOSTATIN [Suspect]
     Active Substance: OCTREOTIDE ACETATE
     Indication: Carcinoid tumour
     Dosage: 100 UG, BID (100 MCG BID FOR 14 DAYS)
     Route: 058
     Dates: start: 2018
  2. SANDOSTATIN [Suspect]
     Active Substance: OCTREOTIDE ACETATE
     Dosage: 30 UG, Q4W
     Route: 030
     Dates: start: 20180717
  3. SANDOSTATIN [Suspect]
     Active Substance: OCTREOTIDE ACETATE
  4. SANDOSTATIN LAR DEPOT [Suspect]
     Active Substance: OCTREOTIDE ACETATE
     Indication: Carcinoid tumour
     Dosage: 30 MG, Q4W (EVERY 4 WEEKS)
     Route: 030
     Dates: start: 20180717
  5. AFINITOR [Suspect]
     Active Substance: EVEROLIMUS
     Indication: Product used for unknown indication
     Dosage: UNK
     Route: 065
     Dates: start: 20200505, end: 20200521
  6. AFINITOR [Suspect]
     Active Substance: EVEROLIMUS
     Dosage: UNK
     Route: 065
     Dates: start: 202005, end: 20200626
  7. NEVANAC [Concomitant]
     Active Substance: NEPAFENAC
     Indication: Product used for unknown indication
     Dosage: UNK, TID
     Route: 065
     Dates: start: 2019
  8. TELMISARTAN [Concomitant]
     Active Substance: TELMISARTAN
     Indication: Hypertension
     Dosage: 1 OT, QD
     Route: 048
     Dates: start: 202001
  9. AMLODIPINE [Concomitant]
     Active Substance: AMLODIPINE BESYLATE
     Indication: Hypertension
     Dosage: 1 DF, QD
     Route: 048
     Dates: start: 2020

REACTIONS (14)
  - Pulmonary embolism [Unknown]
  - Diabetes mellitus [Unknown]
  - Urinary incontinence [Unknown]
  - Weight decreased [Unknown]
  - Mouth ulceration [Unknown]
  - Blood pressure increased [Unknown]
  - Platelet count decreased [Unknown]
  - Nausea [Unknown]
  - Abdominal pain upper [Unknown]
  - Constipation [Recovering/Resolving]
  - Dizziness [Unknown]
  - Pruritus [Unknown]
  - Oedema peripheral [Unknown]
  - Arthralgia [Unknown]

NARRATIVE: CASE EVENT DATE: 20200505
